FAERS Safety Report 15495177 (Version 1)
Quarter: 2018Q4

REPORT INFORMATION
  Report Type: Spontaneous
  Country: DE (occurrence: DE)
  Receive Date: 20181012
  Receipt Date: 20181012
  Transmission Date: 20190205
  Serious: Yes (Hospitalization, Other)
  Sender: FDA-Public Use
  Company Number: DE-ABBVIE-18K-062-2517757-00

PATIENT
  Age: 55 Year
  Sex: Female
  Weight: 51 kg

DRUGS (7)
  1. HUMIRA [Suspect]
     Active Substance: ADALIMUMAB
     Route: 058
     Dates: start: 20180725
  2. DEKRISTOL [Concomitant]
     Active Substance: CHOLECALCIFEROL
     Indication: VITAMIN D DEFICIENCY
     Dates: start: 20180409
  3. ZINC. [Concomitant]
     Active Substance: ZINC
     Indication: ZINC DEFICIENCY
     Dates: start: 20180409
  4. PANTOPRAZOLE [Concomitant]
     Active Substance: PANTOPRAZOLE
     Indication: CROHN^S DISEASE
     Dates: start: 20180409
  5. CALCIUM [Concomitant]
     Active Substance: CALCIUM
     Indication: PRODUCT USED FOR UNKNOWN INDICATION
     Dates: start: 20180409
  6. AZATHIOPRINE. [Concomitant]
     Active Substance: AZATHIOPRINE
     Indication: CROHN^S DISEASE
     Dates: start: 20180409
  7. HUMIRA [Suspect]
     Active Substance: ADALIMUMAB
     Indication: PRODUCT USED FOR UNKNOWN INDICATION
     Route: 058
     Dates: start: 20180711, end: 2018

REACTIONS (2)
  - Foreign body in respiratory tract [Recovered/Resolved]
  - Procedural complication [Recovered/Resolved]

NARRATIVE: CASE EVENT DATE: 20180731
